FAERS Safety Report 23837498 (Version 1)
Quarter: 2024Q2

REPORT INFORMATION
  Report Type: Spontaneous
  Country: US (occurrence: US)
  Receive Date: 20240509
  Receipt Date: 20240509
  Transmission Date: 20240716
  Serious: No
  Sender: FDA-Public Use
  Company Number: US-MEDIMETRIKS-2024-US-005451

PATIENT
  Age: 52 Year
  Sex: Male

DRUGS (1)
  1. FLUOCINOLONE ACETONIDE [Suspect]
     Active Substance: FLUOCINOLONE ACETONIDE
     Indication: Psoriasis
     Dosage: UNKNOWN
     Route: 061

REACTIONS (1)
  - Drug ineffective [Unknown]
